FAERS Safety Report 7051255-9 (Version None)
Quarter: 2010Q4

REPORT INFORMATION
  Report Type: 
  Country: None (occurrence: None)
  Receive Date: 20101018
  Receipt Date: 20101018
  Transmission Date: 20110411
  Serious: No
  Sender: FDA-Public Use
  Company Number: None

PATIENT
  Sex: Male
  Weight: 99.7913 kg

DRUGS (1)
  1. CYANOCOBALAMIN [Suspect]
     Indication: NEUROPATHY PERIPHERAL
     Dosage: 1 ML EVERY TWO WKS I.M.
     Route: 030

REACTIONS (4)
  - DYSPHAGIA [None]
  - HYPOAESTHESIA [None]
  - PAIN [None]
  - UNEVALUABLE EVENT [None]
